FAERS Safety Report 4705877-8 (Version None)
Quarter: 2005Q2

REPORT INFORMATION
  Report Type: 
  Country: None (occurrence: None)
  Receive Date: 20050629
  Receipt Date: 20050412
  Transmission Date: 20051028
  Serious: No
  Sender: FDA-Public Use
  Company Number: 05P-163-0297114-00

PATIENT
  Age: 50 Year
  Sex: Female
  Weight: 81.1939 kg

DRUGS (4)
  1. HUMIRA [Suspect]
     Indication: RHEUMATOID ARTHRITIS
     Dosage: 40 MG, 1 IN 2 WK, SUBCUTANEOUS
     Route: 058
     Dates: start: 20050201
  2. LANTIS [Concomitant]
  3. INSULIN LISPRO [Concomitant]
  4. LOSARTAN POTASSIUM [Concomitant]

REACTIONS (6)
  - ARTHRALGIA [None]
  - CONTUSION [None]
  - DRUG INEFFECTIVE [None]
  - EPISTAXIS [None]
  - FURUNCLE [None]
  - PLATELET COUNT DECREASED [None]
